FAERS Safety Report 9500444 (Version 1)
Quarter: 2013Q1

REPORT INFORMATION
  Report Type: Spontaneous
  Country: US (occurrence: None)
  Receive Date: 20130107
  Receipt Date: 20130107
  Transmission Date: 20140127
  Serious: No
  Sender: FDA-Public Use
  Company Number: PHHY2012US098948

PATIENT
  Age: 36 Year
  Sex: Female
  Weight: 61.7 kg

DRUGS (5)
  1. GILENYA [Suspect]
     Indication: MULTIPLE SCLEROSIS
     Route: 048
     Dates: start: 20111006
  2. KEPPRA (LEVETIRACETAM) [Concomitant]
  3. ROPINIROLE (ROPINIROLE) [Concomitant]
  4. XANAX (ALPRAZOLAM) [Concomitant]
  5. LEXAPRO (ESCITALOPRAM OXALATE) [Concomitant]

REACTIONS (2)
  - Narcolepsy [None]
  - Somnolence [None]
